FAERS Safety Report 7045945-1 (Version None)
Quarter: 2010Q4

REPORT INFORMATION
  Report Type: 
  Country: None (occurrence: None)
  Receive Date: 20101014
  Receipt Date: 20101011
  Transmission Date: 20110411
  Serious: Yes (Death)
  Sender: FDA-Public Use
  Company Number: US-JNJFOC-20080102280

PATIENT
  Age: 39 Year
  Sex: Female

DRUGS (11)
  1. IBUPROFEN [Suspect]
     Indication: SUICIDE ATTEMPT
     Route: 048
  2. ACETAMINOPHEN [Suspect]
     Route: 048
  3. ACETAMINOPHEN [Suspect]
     Indication: SUICIDE ATTEMPT
     Route: 048
  4. ASPIRIN [Suspect]
     Indication: SUICIDE ATTEMPT
     Route: 048
  5. QUETIAPINE [Suspect]
     Indication: SUICIDE ATTEMPT
     Route: 048
  6. ANGIOTENSIN RECEPTOR BLOCKER [Suspect]
     Indication: SUICIDE ATTEMPT
     Route: 048
  7. BUTALBITAL ACETAMINOPHEN AND CAFFEINE [Suspect]
     Indication: SUICIDE ATTEMPT
     Route: 048
  8. ESCITALOPRAM [Suspect]
     Indication: SUICIDE ATTEMPT
     Route: 048
  9. CAFFEINE [Suspect]
     Indication: SUICIDE ATTEMPT
     Route: 048
  10. NAPROXEN [Suspect]
     Indication: SUICIDE ATTEMPT
     Route: 048
  11. FEXOFENADINE HCL [Suspect]
     Indication: SUICIDE ATTEMPT
     Route: 048

REACTIONS (1)
  - DRUG TOXICITY [None]
